FAERS Safety Report 24003466 (Version 1)
Quarter: 2024Q2

REPORT INFORMATION
  Report Type: Spontaneous
  Country: DE (occurrence: DE)
  Receive Date: 20240624
  Receipt Date: 20240624
  Transmission Date: 20240716
  Serious: Yes (Hospitalization, Other)
  Sender: FDA-Public Use
  Company Number: DE-STRIDES ARCOLAB LIMITED-2024SP007100

PATIENT
  Age: 36 Year
  Sex: Female

DRUGS (8)
  1. PREDNISOLONE [Suspect]
     Active Substance: PREDNISOLONE
     Indication: Pruritus
     Dosage: UNK
     Route: 048
  2. GABAPENTIN [Suspect]
     Active Substance: GABAPENTIN
     Indication: Pruritus
     Dosage: 900 MILLIGRAM, QD
     Route: 065
  3. URSODIOL [Suspect]
     Active Substance: URSODIOL
     Indication: Pruritus
     Dosage: UNK
     Route: 065
  4. URSODIOL [Suspect]
     Active Substance: URSODIOL
     Dosage: UNK
     Route: 065
  5. AZATHIOPRINE [Suspect]
     Active Substance: AZATHIOPRINE
     Indication: Pruritus
     Dosage: 150 MILLIGRAM, QD
     Route: 065
  6. NALOXONE [Suspect]
     Active Substance: NALOXONE
     Indication: Pruritus
     Dosage: 0.02 MILLIGRAM/KILOGRAM
     Route: 042
  7. NALOXONE [Suspect]
     Active Substance: NALOXONE
     Dosage: UNK (TREATMENT WAS REPEATED MONTHLY FOR THE NEXT 3 MONTHS)
     Route: 065
  8. NALOXONE [Suspect]
     Active Substance: NALOXONE
     Dosage: UNK (SUBSEQUENTLY FOR EVERY 6?8 WEEKS)
     Route: 065

REACTIONS (5)
  - Drug ineffective [Unknown]
  - Pruritus [Recovered/Resolved]
  - Premature delivery [Unknown]
  - Maternal exposure during pregnancy [Unknown]
  - Off label use [Unknown]
